FAERS Safety Report 9904171 (Version 1)
Quarter: 2014Q1

REPORT INFORMATION
  Report Type: Spontaneous
  Country: US (occurrence: US)
  Receive Date: 20140218
  Receipt Date: 20140218
  Transmission Date: 20141002
  Serious: No
  Sender: FDA-Public Use
  Company Number: US-BIOGENIDEC-2014BI013812

PATIENT
  Sex: Female

DRUGS (6)
  1. TECFIDERA [Suspect]
     Indication: MULTIPLE SCLEROSIS
     Route: 048
  2. HYDROCODONE [Concomitant]
  3. LEVOTHYROXINE [Concomitant]
  4. METHYLPHENIDATE [Concomitant]
  5. AMLODIPINE [Concomitant]
  6. BUPROPION [Concomitant]

REACTIONS (1)
  - Ear infection [Unknown]
